FAERS Safety Report 13553444 (Version 1)
Quarter: 2017Q2

REPORT INFORMATION
  Report Type: Report from Study
  Country: US (occurrence: US)
  Receive Date: 20170517
  Receipt Date: 20170517
  Transmission Date: 20170830
  Serious: Yes (Other)
  Sender: FDA-Public Use
  Company Number: US-MALLINCKRODT-T201701887

PATIENT
  Age: 47 Year
  Sex: Female
  Weight: 69 kg

DRUGS (13)
  1. TRIAZOLAM. [Concomitant]
     Active Substance: TRIAZOLAM
  2. REPOSITORY CORTICOTROPIN INJECTION [Suspect]
     Active Substance: CORTICOTROPIN
     Indication: MULTIPLE SCLEROSIS RELAPSE
     Dosage: 80 UNITS, ONCE DAILY FOR 10 DAYS
     Route: 058
     Dates: start: 20170412, end: 20170422
  3. VITAMINS [Concomitant]
     Active Substance: VITAMINS
  4. FUROSEMIDE. [Concomitant]
     Active Substance: FUROSEMIDE
  5. METHYLPHENIDATE. [Concomitant]
     Active Substance: METHYLPHENIDATE
  6. NEXIUM [Concomitant]
     Active Substance: ESOMEPRAZOLE MAGNESIUM
  7. REPOSITORY CORTICOTROPIN INJECTION [Suspect]
     Active Substance: CORTICOTROPIN
     Dosage: UNK
     Route: 065
     Dates: start: 2008
  8. ALPRAZOLAM. [Concomitant]
     Active Substance: ALPRAZOLAM
  9. FAMOTIDINE. [Concomitant]
     Active Substance: FAMOTIDINE
  10. TRAMADOL. [Concomitant]
     Active Substance: TRAMADOL
  11. LUNESTA [Concomitant]
     Active Substance: ESZOPICLONE
  12. TIZANIDINE. [Concomitant]
     Active Substance: TIZANIDINE
  13. VESICARE [Concomitant]
     Active Substance: SOLIFENACIN SUCCINATE

REACTIONS (15)
  - Ovarian mass [Unknown]
  - Weight increased [Not Recovered/Not Resolved]
  - Fatigue [Not Recovered/Not Resolved]
  - Myocardial infarction [Unknown]
  - Mallory-Weiss syndrome [Unknown]
  - Depression [Not Recovered/Not Resolved]
  - Internal haemorrhage [Unknown]
  - Hernia [Unknown]
  - Emotional distress [Unknown]
  - Increased appetite [Not Recovered/Not Resolved]
  - Oesophageal perforation [Unknown]
  - Feeling abnormal [Not Recovered/Not Resolved]
  - Drug effect decreased [Not Recovered/Not Resolved]
  - Dry mouth [Unknown]
  - Disturbance in attention [Not Recovered/Not Resolved]

NARRATIVE: CASE EVENT DATE: 200807
